FAERS Safety Report 9582655 (Version 1)
Quarter: 2013Q4

REPORT INFORMATION
  Report Type: Spontaneous
  Country: US (occurrence: US)
  Receive Date: 20131002
  Receipt Date: 20131002
  Transmission Date: 20140711
  Serious: No
  Sender: FDA-Public Use
  Company Number: US-AMGEN-USASP2013041822

PATIENT
  Age: 54 Year
  Sex: Female

DRUGS (7)
  1. ENBREL [Suspect]
     Indication: PRODUCT USED FOR UNKNOWN INDICATION
     Dosage: 50 MG, QWK
     Route: 058
     Dates: start: 201202
  2. METHOTREXATE [Concomitant]
     Dosage: 2.5 MG, UNK
  3. BIOTIN [Concomitant]
     Dosage: 5 MG, UNK
  4. ALEVE [Concomitant]
     Dosage: 220 MG, UNK
  5. FISH OIL [Concomitant]
     Dosage: UNK
  6. FOLIC ACID [Concomitant]
     Dosage: UNK
  7. OMEGA 3                            /01334101/ [Concomitant]
     Dosage: 500 MG, UNK

REACTIONS (2)
  - Injection site bruising [Recovered/Resolved]
  - Injection site pain [Recovered/Resolved]
